FAERS Safety Report 12847485 (Version 2)
Quarter: 2017Q2

REPORT INFORMATION
  Report Type: Spontaneous
  Country: FR (occurrence: FR)
  Receive Date: 20161014
  Receipt Date: 20170403
  Transmission Date: 20170830
  Serious: Yes (Death, Hospitalization, Other)
  Sender: FDA-Public Use
  Company Number: FR-PFIZER INC-2016472879

PATIENT
  Age: 44 Year
  Sex: Male

DRUGS (6)
  1. VORICONAZOLE. [Suspect]
     Active Substance: VORICONAZOLE
     Indication: BRONCHOPULMONARY ASPERGILLOSIS
     Dosage: 300 MG, 2X/DAY
     Route: 042
  2. BRINCIDOFOVIR [Suspect]
     Active Substance: BRINCIDOFOVIR
     Indication: ADENOVIRUS INFECTION
     Dosage: 100 MG TWICE WEEKLY (TUESDAYS AND FRIDAYS)
     Route: 048
     Dates: start: 20160830, end: 20160909
  3. PENTAMIDINE ISETHIONATE [Concomitant]
     Active Substance: PENTAMIDINE ISETHIONATE
     Indication: PROPHYLAXIS
     Dosage: 1 DF, MONTHLY (ON DAY 7 OF EACH MONTH)
     Route: 055
  4. TAZOCILLINE [Suspect]
     Active Substance: PIPERACILLIN SODIUM\TAZOBACTAM SODIUM
     Indication: INFECTION PROPHYLAXIS
     Dosage: 12 G, 1X/DAY
     Route: 042
  5. ROVAMYCINE /00074401/ [Suspect]
     Active Substance: SPIRAMYCIN
     Indication: TOXOPLASMOSIS PROPHYLAXIS
     Dosage: 4.5 MIU ONCE DAILY
  6. FOSCAVIR [Concomitant]
     Active Substance: FOSCARNET SODIUM
     Indication: CYTOMEGALOVIRUS INFECTION
     Dosage: 3 G, 2X/DAY
     Dates: start: 20160906, end: 20160908

REACTIONS (11)
  - Diarrhoea [Fatal]
  - Generalised oedema [Unknown]
  - Anal incontinence [Unknown]
  - Abdominal pain [Unknown]
  - White blood cell count increased [Unknown]
  - Hypoproteinaemia [Unknown]
  - Weight decreased [Unknown]
  - Malnutrition [Unknown]
  - Amyotrophy [Unknown]
  - Ascites [Unknown]
  - Muscular weakness [Unknown]

NARRATIVE: CASE EVENT DATE: 201608
